FAERS Safety Report 24565589 (Version 1)
Quarter: 2024Q4

REPORT INFORMATION
  Report Type: Spontaneous
  Country: CH (occurrence: CH)
  Receive Date: 20241030
  Receipt Date: 20241030
  Transmission Date: 20250114
  Serious: Yes (Hospitalization, Other)
  Sender: GLAND PHARMA LTD
  Company Number: CH-GLANDPHARMA-CH-2024GLNLIT00939

PATIENT
  Age: 29 Year
  Sex: Female

DRUGS (11)
  1. TRANEXAMIC ACID [Suspect]
     Active Substance: TRANEXAMIC ACID
     Indication: Postpartum haemorrhage
     Route: 042
  2. MISOPROSTOL [Concomitant]
     Active Substance: MISOPROSTOL
     Route: 065
  3. FIBRINOGEN [Concomitant]
     Active Substance: FIBRINOGEN HUMAN
     Indication: Postpartum haemorrhage
     Route: 065
  4. RINGERS LACTAT [CALCIUM CHLORIDE;GLUCOSE;POTASSIUM CHLORIDE;SODIUM LAC [Concomitant]
     Indication: Postpartum haemorrhage
     Route: 065
  5. CARBETOCIN [Concomitant]
     Active Substance: CARBETOCIN
     Indication: Vaginal haemorrhage
     Route: 042
  6. FRESH FROZEN PLASMA [Concomitant]
     Active Substance: HUMAN PLASMA
     Indication: Postpartum haemorrhage
     Dosage: 10 UNITS
     Route: 065
  7. VOLUVEN [HETASTARCH;SODIUM CHLORIDE] [Concomitant]
     Indication: Postpartum haemorrhage
     Route: 065
  8. CALCIUM [Concomitant]
     Active Substance: CALCIUM
     Indication: Postpartum haemorrhage
     Route: 065
  9. BERIPLEX [FACTOR II (PROTHROMBIN);FACTOR IX;FACTOR VII (PROCONVERTIN); [Concomitant]
     Indication: Postpartum haemorrhage
     Dosage: 1000 IE
     Route: 065
  10. CEFUROXIME [Concomitant]
     Active Substance: CEFUROXIME
     Indication: Antibiotic prophylaxis
     Route: 065
  11. NOREPINEPHRINE [Concomitant]
     Active Substance: NOREPINEPHRINE\NOREPINEPHRINE BITARTRATE
     Indication: Haemodynamic instability
     Dosage: 0.15 ?G/KG/MIN
     Route: 065

REACTIONS (3)
  - Acute kidney injury [Unknown]
  - Drug ineffective for unapproved indication [Unknown]
  - Maternal exposure during delivery [Unknown]
